FAERS Safety Report 10283849 (Version 1)
Quarter: 2014Q3

REPORT INFORMATION
  Report Type: Spontaneous
  Country: US (occurrence: US)
  Receive Date: 20140708
  Receipt Date: 20140708
  Transmission Date: 20150326
  Serious: No
  Sender: FDA-Public Use
  Company Number: US-SANOFI-AVENTIS-2011SA041263

PATIENT
  Age: 80 Year
  Sex: Female

DRUGS (1)
  1. MULTAQ [Suspect]
     Active Substance: DRONEDARONE
     Route: 048

REACTIONS (2)
  - Renal disorder [Recovered/Resolved]
  - Renal function test abnormal [Recovered/Resolved]
